FAERS Safety Report 5140565-8 (Version None)
Quarter: 2006Q4

REPORT INFORMATION
  Report Type: 
  Country: None (occurrence: None)
  Receive Date: 20061019
  Receipt Date: 20061010
  Transmission Date: 20070319
  Serious: Yes (Hospitalization)
  Sender: FDA-Public Use
  Company Number: THYM-11071

PATIENT
  Age: 58 Year
  Sex: Female
  Weight: 54.4316 kg

DRUGS (9)
  1. THYMOGLOBULIN [Suspect]
     Indication: RENAL TRANSPLANT
     Dosage: 100 MG QD IV
     Route: 042
     Dates: start: 20060301, end: 20060301
  2. THYMOGLOBULIN [Suspect]
     Indication: RENAL TRANSPLANT
     Dosage: 50 MG QD IV
     Route: 042
     Dates: start: 20060302, end: 20060302
  3. THYMOGLOBULIN [Suspect]
     Indication: RENAL TRANSPLANT
     Dosage: 100 MG QD IV
     Route: 042
     Dates: start: 20060303, end: 20060303
  4. CALTRATE D [Concomitant]
  5. MYCOPHENOLATE MOFETIL [Concomitant]
  6. TACROLIMUS [Concomitant]
  7. LOSARTAN POSTASSIUM [Concomitant]
  8. AMLODIPINE [Concomitant]
  9. BACTRIM [Concomitant]

REACTIONS (6)
  - ARTHRALGIA [None]
  - BURNING SENSATION [None]
  - CHILLS [None]
  - LUNG DISORDER [None]
  - MALAISE [None]
  - PYREXIA [None]
